FAERS Safety Report 4335443-8 (Version None)
Quarter: 2004Q2

REPORT INFORMATION
  Report Type: 
  Country: None (occurrence: None)
  Receive Date: 20040406
  Receipt Date: 20040105
  Transmission Date: 20050107
  Serious: No
  Sender: FDA-Public Use
  Company Number: HQWYE171807JAN04

PATIENT
  Sex: Female

DRUGS (1)
  1. PROTONIX [Suspect]
     Indication: GASTROINTESTINAL HAEMORRHAGE
     Dosage: INTRAVENOUS
     Route: 042
     Dates: start: 20040104, end: 20040104

REACTIONS (2)
  - INJECTION SITE EXTRAVASATION [None]
  - INJECTION SITE NECROSIS [None]
